FAERS Safety Report 9258223 (Version 1)
Quarter: 2013Q1

REPORT INFORMATION
  Report Type: Spontaneous
  Country: US (occurrence: None)
  Receive Date: 20121212
  Receipt Date: 20121212
  Transmission Date: 20140127
  Serious: No
  Sender: FDA-Public Use
  Company Number: 1210USA001636

PATIENT
  Age: 60 Year
  Sex: Male
  Weight: 117.9 kg

DRUGS (3)
  1. VICTRELIS (BOCEPREVIR) [Suspect]
     Indication: HEPATITIS C
     Dates: start: 20120314, end: 20120928
  2. RIBAVIRIN (RIBAVIRIN) [Suspect]
  3. PEGASYS (PEGINTERFERON ALFA-2A) [Suspect]
     Indication: HEPATITIS C

REACTIONS (2)
  - Hepatitis C [None]
  - White blood cell count decreased [None]
